FAERS Safety Report 4612403-0 (Version None)
Quarter: 2005Q1

REPORT INFORMATION
  Report Type: 
  Country: None (occurrence: None)
  Receive Date: 20050316
  Receipt Date: 20050308
  Transmission Date: 20050727
  Serious: Yes (Other)
  Sender: FDA-Public Use
  Company Number: 200501551

PATIENT
  Age: 55 Year
  Sex: Female

DRUGS (1)
  1. ACULAR [Suspect]
     Indication: HYPERSENSITIVITY
     Dosage: 2 DROP QID EYE
     Dates: start: 20041224, end: 20041227

REACTIONS (14)
  - BLINDNESS TRANSIENT [None]
  - BLINDNESS UNILATERAL [None]
  - DIFFICULTY IN WALKING [None]
  - DRUG INEFFECTIVE [None]
  - EYE IRRITATION [None]
  - EYE PAIN [None]
  - EYE SWELLING [None]
  - HERPES OPHTHALMIC [None]
  - HYPERSENSITIVITY [None]
  - LACRIMATION INCREASED [None]
  - NASAL DISCOMFORT [None]
  - RASH [None]
  - SKIN SWELLING [None]
  - VISION BLURRED [None]
